FAERS Safety Report 7281194-X (Version None)
Quarter: 2011Q1

REPORT INFORMATION
  Report Type: 
  Country: None (occurrence: None)
  Receive Date: 20110208
  Receipt Date: 20101021
  Transmission Date: 20110831
  Serious: No
  Sender: FDA-Public Use
  Company Number: US-BAYER-201022786BCC

PATIENT
  Sex: Male
  Weight: 93.182 kg

DRUGS (8)
  1. POTASSIUM [POTASSIUM] [Concomitant]
  2. SIMVASTATIN [Concomitant]
  3. VITAMIN D [Concomitant]
  4. NEXIUM [Concomitant]
  5. ALEVE [Suspect]
     Indication: ANALGESIC THERAPY
     Route: 048
  6. ST. JOHN'S WORT [Concomitant]
  7. UNCODEABLE ^UNCLASSIFIABLE^ [Concomitant]
  8. PROPRANOLOL [Concomitant]

REACTIONS (1)
  - CONTUSION [None]
